FAERS Safety Report 7258592-3 (Version None)
Quarter: 2011Q1

REPORT INFORMATION
  Report Type: 
  Country: None (occurrence: None)
  Receive Date: 20110129
  Receipt Date: 20100517
  Transmission Date: 20110831
  Serious: No
  Sender: FDA-Public Use
  Company Number: US-ABBOTT-10P-163-0645490-00

PATIENT
  Sex: Female
  Weight: 53.572 kg

DRUGS (3)
  1. PREDNISONE [Concomitant]
     Indication: RHEUMATOID ARTHRITIS
     Dates: start: 20100515
  2. PREDNISONE [Concomitant]
     Dosage: 3 IN THE MORNING, 2 AT NIGHT
  3. HUMIRA [Suspect]
     Indication: PRODUCT USED FOR UNKNOWN INDICATION

REACTIONS (2)
  - PAIN [None]
  - HERPES ZOSTER [None]
